FAERS Safety Report 10622411 (Version 2)
Quarter: 2014Q4

REPORT INFORMATION
  Report Type: Spontaneous
  Country: DE (occurrence: DE)
  Receive Date: 20141203
  Receipt Date: 20141203
  Transmission Date: 20150529
  Serious: Yes (Other)
  Sender: FDA-Public Use
  Company Number: DE-SA-2014SA154166

PATIENT
  Sex: Female

DRUGS (5)
  1. TILIDINE [Concomitant]
     Active Substance: TILIDINE
     Indication: PAIN
     Route: 048
     Dates: start: 20140714
  2. ZOPICLON [Concomitant]
     Active Substance: ZOPICLONE
     Indication: SLEEP DISORDER
     Route: 048
     Dates: start: 20131220
  3. AUBAGIO [Suspect]
     Active Substance: TERIFLUNOMIDE
     Indication: MULTIPLE SCLEROSIS
     Route: 048
     Dates: start: 20140219, end: 20141028
  4. OMEPRAZOLE. [Concomitant]
     Active Substance: OMEPRAZOLE
     Indication: GASTRITIS
     Route: 048
     Dates: start: 20140428
  5. CYMBALTA [Concomitant]
     Active Substance: DULOXETINE HYDROCHLORIDE
     Indication: DEPRESSION
     Route: 048
     Dates: start: 20140926

REACTIONS (3)
  - Visual impairment [Recovered/Resolved]
  - Optic neuritis [Recovered/Resolved]
  - Multiple sclerosis relapse [Recovered/Resolved]
